FAERS Safety Report 18441565 (Version 1)
Quarter: 2020Q4

REPORT INFORMATION
  Report Type: Spontaneous
  Country: US (occurrence: US)
  Receive Date: 20201029
  Receipt Date: 20201029
  Transmission Date: 20210114
  Serious: Yes (Other)
  Sender: FDA-Public Use
  Company Number: None

PATIENT
  Age: 60 Year
  Sex: Female
  Weight: 66.68 kg

DRUGS (6)
  1. HALAVEN [Suspect]
     Active Substance: ERIBULIN MESYLATE
     Indication: BREAST CANCER FEMALE
     Route: 042
     Dates: start: 20201006, end: 20201029
  2. ONDANSETRON [Suspect]
     Active Substance: ONDANSETRON
     Indication: BREAST CANCER FEMALE
     Route: 042
     Dates: start: 20201006, end: 20201029
  3. KISQALI [Concomitant]
     Active Substance: RIBOCICLIB
  4. CLONAZEPAM. [Concomitant]
     Active Substance: CLONAZEPAM
  5. BIOTIN [Concomitant]
     Active Substance: BIOTIN
  6. ELIQUIS [Concomitant]
     Active Substance: APIXABAN

REACTIONS (1)
  - Disease progression [None]

NARRATIVE: CASE EVENT DATE: 20201029
